FAERS Safety Report 6438135-4 (Version None)
Quarter: 2009Q4

REPORT INFORMATION
  Report Type: 
  Country: None (occurrence: None)
  Receive Date: 20091109
  Receipt Date: 20091102
  Transmission Date: 20100525
  Serious: Yes (Death, Hospitalization)
  Sender: FDA-Public Use
  Company Number: 20097427

PATIENT
  Age: 65 Year
  Sex: Male
  Weight: 57 kg

DRUGS (6)
  1. BACLOFEN [Suspect]
     Indication: MUSCLE SPASTICITY
     Dosage: MCG, DAILY, INTRATHECAL
     Route: 037
     Dates: start: 20090818
  2. BLOPRESS [Concomitant]
  3. DEPAKENE [Concomitant]
  4. PLETAL [Concomitant]
  5. YOUPIS [Concomitant]
  6. GABALON [Concomitant]

REACTIONS (5)
  - BLOOD PRESSURE DECREASED [None]
  - CARDIO-RESPIRATORY ARREST [None]
  - HAEMATEMESIS [None]
  - PALLOR [None]
  - PNEUMONIA [None]
